FAERS Safety Report 6013382-4 (Version None)
Quarter: 2008Q4

REPORT INFORMATION
  Report Type: 
  Country: None (occurrence: None)
  Receive Date: 20081219
  Receipt Date: 20081211
  Transmission Date: 20090506
  Serious: Yes (Other)
  Sender: FDA-Public Use
  Company Number: US-KINGPHARMUSA00001-K200801397

PATIENT
  Age: 54 Year
  Sex: Female
  Weight: 72.562 kg

DRUGS (1)
  1. BICILLIN L-A [Suspect]
     Indication: ORAL INFECTION
     Dosage: UNK
     Dates: start: 20081126, end: 20081206

REACTIONS (12)
  - AGITATION [None]
  - ANOREXIA [None]
  - ASTHENIA [None]
  - CHROMATURIA [None]
  - DIPLOPIA [None]
  - DIZZINESS [None]
  - FATIGUE [None]
  - FEELING ABNORMAL [None]
  - MALAISE [None]
  - OEDEMA PERIPHERAL [None]
  - PYREXIA [None]
  - URINE ODOUR ABNORMAL [None]
